FAERS Safety Report 9823942 (Version 2)
Quarter: 2014Q1

REPORT INFORMATION
  Report Type: Spontaneous
  Country: US (occurrence: US)
  Receive Date: 20140116
  Receipt Date: 20140116
  Transmission Date: 20141002
  Serious: No
  Sender: FDA-Public Use
  Company Number: US-GILEAD-2011-0037968

PATIENT
  Sex: Female

DRUGS (22)
  1. LETAIRIS [Suspect]
     Indication: PULMONARY HYPERTENSION
     Route: 048
     Dates: start: 20110329
  2. LETAIRIS [Suspect]
     Route: 048
     Dates: start: 20100902, end: 20110304
  3. AMIODARONE [Concomitant]
  4. TRILIPRX [Concomitant]
  5. PRAVASTATIN [Concomitant]
  6. CARDIZEM [Concomitant]
  7. RAMIPRIL [Concomitant]
  8. CLONIDINE [Concomitant]
  9. LASIX [Concomitant]
  10. NITROGLYCERINE [Concomitant]
  11. MONTELUKAST SODIUM [Concomitant]
  12. ADVAIR [Concomitant]
  13. ROPINIROLE [Concomitant]
  14. FEXOFENADINE HCL [Concomitant]
     Indication: RHINITIS ALLERGIC
  15. FLUTICASONE FUROATE [Concomitant]
     Indication: RHINITIS ALLERGIC
  16. DOXIPIN [Concomitant]
  17. PROTONIX [Concomitant]
     Indication: GASTROOESOPHAGEAL REFLUX DISEASE
  18. SYNTHROID [Concomitant]
  19. PLAQUENIL [Concomitant]
     Indication: RHEUMATOID ARTHRITIS
  20. ENBREL [Concomitant]
     Indication: RHEUMATOID ARTHRITIS
  21. LEFLUNOMIDE [Concomitant]
     Indication: RHEUMATOID ARTHRITIS
  22. POTASSIUM [Concomitant]

REACTIONS (1)
  - Hepatic enzyme increased [Recovered/Resolved]
